FAERS Safety Report 10311427 (Version 1)
Quarter: 2014Q3

REPORT INFORMATION
  Report Type: Spontaneous
  Country: AU (occurrence: AU)
  Receive Date: 20140717
  Receipt Date: 20140717
  Transmission Date: 20150326
  Serious: Yes (Other)
  Sender: FDA-Public Use
  Company Number: AU-BRISTOL-MYERS SQUIBB COMPANY-21185178

PATIENT
  Age: 84 Year
  Sex: Female

DRUGS (1)
  1. SPRYCEL [Suspect]
     Active Substance: DASATINIB
     Indication: CHRONIC MYELOID LEUKAEMIA
     Dosage: SEP2012-MAR-2013, NOV-2013
     Route: 048
     Dates: start: 201209

REACTIONS (6)
  - Cardiac failure [Unknown]
  - Arteriovenous malformation [Unknown]
  - Pleural effusion [Unknown]
  - Intestinal haemorrhage [Recovered/Resolved]
  - Polyp [Unknown]
  - Endocarditis [Unknown]
